FAERS Safety Report 15120528 (Version 1)
Quarter: 2018Q3

REPORT INFORMATION
  Report Type: Spontaneous
  Country: US (occurrence: US)
  Receive Date: 20180613
  Receipt Date: 20180613
  Transmission Date: 20181010
  Serious: Yes (Disabling, Other)
  Sender: FDA-Public Use
  Company Number: None

PATIENT
  Age: 45 Year
  Sex: Male
  Weight: 78.75 kg

DRUGS (12)
  1. ECHINACEA [Concomitant]
     Active Substance: ECHINACEA, UNSPECIFIED
  2. OMEPRAZOLE. [Suspect]
     Active Substance: OMEPRAZOLE
     Indication: GASTROOESOPHAGEAL REFLUX DISEASE
     Dosage: ?          QUANTITY:30 DF DOSAGE FORM;?
     Route: 048
  3. COQ10 [Concomitant]
     Active Substance: UBIDECARENONE
  4. SUNFLOWER LECITHIN [Concomitant]
  5. MAGNESIUM [Concomitant]
     Active Substance: MAGNESIUM
  6. VITAMIN C [Concomitant]
     Active Substance: ASCORBIC ACID
  7. VITAMIN E [Concomitant]
     Active Substance: .ALPHA.-TOCOPHEROL
  8. ZINC. [Concomitant]
     Active Substance: ZINC
  9. GARDEN OF LIFE MEN^S OVER 40 MULTI?VITAMIN [Concomitant]
  10. GLUTAMINE [Concomitant]
     Active Substance: GLUTAMINE
  11. VITAMIN D [Concomitant]
     Active Substance: CHOLECALCIFEROL
  12. GOLDENSEAL [Concomitant]
     Active Substance: HERBALS\HOMEOPATHICS\GOLDENSEAL

REACTIONS (8)
  - Insomnia [None]
  - Sleep disorder [None]
  - Unevaluable event [None]
  - Anxiety [None]
  - Tinnitus [None]
  - Disturbance in attention [None]
  - Deafness bilateral [None]
  - Oral candidiasis [None]

NARRATIVE: CASE EVENT DATE: 20180516
